FAERS Safety Report 10108970 (Version 1)
Quarter: 2014Q2

REPORT INFORMATION
  Report Type: Spontaneous
  Country: HR (occurrence: HR)
  Receive Date: 20140425
  Receipt Date: 20140425
  Transmission Date: 20141212
  Serious: Yes (Death, Hospitalization, Other)
  Sender: FDA-Public Use
  Company Number: HR-JNJFOC-20140410096

PATIENT
  Age: 80 Year
  Sex: Male

DRUGS (2)
  1. RISPOLEPT CONSTA [Suspect]
     Indication: PSYCHOTIC DISORDER DUE TO A GENERAL MEDICAL CONDITION
     Route: 030
  2. RISPERIDONE [Suspect]
     Indication: PSYCHOTIC DISORDER DUE TO A GENERAL MEDICAL CONDITION
     Route: 048

REACTIONS (1)
  - Pneumonia [Fatal]
